FAERS Safety Report 17660810 (Version 9)
Quarter: 2023Q1

REPORT INFORMATION
  Report Type: Report from Study
  Country: CA (occurrence: CA)
  Receive Date: 20200413
  Receipt Date: 20230119
  Transmission Date: 20230417
  Serious: Yes (Other)
  Sender: FDA-Public Use
  Company Number: None

PATIENT
  Age: 63 Year
  Sex: Male

DRUGS (9)
  1. ERELZI [Suspect]
     Active Substance: ETANERCEPT-SZZS
     Indication: Rheumatoid arthritis
     Dosage: 50 MG, QW
     Route: 058
     Dates: start: 20190917
  2. ERELZI [Suspect]
     Active Substance: ETANERCEPT-SZZS
     Dosage: 50 MG, QW
     Route: 058
     Dates: start: 20200421
  3. ERELZI [Suspect]
     Active Substance: ETANERCEPT-SZZS
     Dosage: 50 MG
     Route: 058
     Dates: start: 20221124
  4. ERELZI [Suspect]
     Active Substance: ETANERCEPT-SZZS
     Dosage: 50 MG
     Route: 058
     Dates: start: 20230112
  5. METHOTREXATE [Suspect]
     Active Substance: METHOTREXATE
     Indication: Product used for unknown indication
     Dosage: 1 DF, QW
     Route: 058
     Dates: start: 201902, end: 20200228
  6. FOLIC ACID [Concomitant]
     Active Substance: FOLIC ACID
     Indication: Product used for unknown indication
     Dosage: 1 DF, QW
     Route: 065
  7. SULFASALAZINE [Concomitant]
     Active Substance: SULFASALAZINE
     Indication: Product used for unknown indication
     Dosage: 1 DF, BID
     Route: 048
     Dates: start: 201905, end: 202001
  8. PREDNISONE [Concomitant]
     Active Substance: PREDNISONE
     Indication: Product used for unknown indication
     Dosage: 1 DF, QID (4 TIMES DAILY)
     Route: 065
  9. WHEATGRASS [Concomitant]
     Indication: Product used for unknown indication
     Dosage: UNK
     Route: 065

REACTIONS (24)
  - Hepatic enzyme increased [Unknown]
  - Cerebrovascular accident [Unknown]
  - Muscle enzyme increased [Unknown]
  - Vomiting [Not Recovered/Not Resolved]
  - Arthritis [Unknown]
  - Pain [Recovered/Resolved]
  - Musculoskeletal stiffness [Unknown]
  - Hypokinesia [Unknown]
  - Sleep disorder [Unknown]
  - Fibromyalgia [Unknown]
  - Malaise [Unknown]
  - Fatigue [Unknown]
  - Labyrinthitis [Unknown]
  - Arthralgia [Unknown]
  - Pain in extremity [Unknown]
  - Balance disorder [Unknown]
  - Asthenia [Unknown]
  - General physical health deterioration [Unknown]
  - Weight bearing difficulty [Unknown]
  - Gait disturbance [Unknown]
  - C-reactive protein abnormal [Unknown]
  - Injection site pain [Not Recovered/Not Resolved]
  - Injection site haemorrhage [Unknown]
  - Drug ineffective [Unknown]

NARRATIVE: CASE EVENT DATE: 20190901
